FAERS Safety Report 18051646 (Version 2)
Quarter: 2020Q3

REPORT INFORMATION
  Report Type: Report from Study
  Country: None (occurrence: US)
  Receive Date: 20200722
  Receipt Date: 20200818
  Transmission Date: 20201103
  Serious: Yes (Hospitalization, Other)
  Sender: FDA-Public Use
  Company Number: US-ABBVIE-20K-163-3430959-00

PATIENT
  Age: 66 Year
  Sex: Female
  Weight: 62.2 kg

DRUGS (6)
  1. CLOBETASOL [Concomitant]
     Active Substance: CLOBETASOL
     Indication: PSORIATIC ARTHROPATHY
  2. CALCIPOTRIENE. [Concomitant]
     Active Substance: CALCIPOTRIENE
     Indication: PSORIATIC ARTHROPATHY
  3. HUMIRA [Suspect]
     Active Substance: ADALIMUMAB
     Indication: PSORIATIC ARTHROPATHY
     Route: 058
     Dates: start: 201901, end: 20200626
  4. LEUCOVORIN. [Concomitant]
     Active Substance: LEUCOVORIN
     Indication: PSORIATIC ARTHROPATHY
  5. HUMIRA [Suspect]
     Active Substance: ADALIMUMAB
     Route: 058
  6. METHOTREXATE. [Concomitant]
     Active Substance: METHOTREXATE
     Indication: PSORIATIC ARTHROPATHY

REACTIONS (17)
  - Psoriasis [Recovered/Resolved]
  - Hip arthroplasty [Recovered/Resolved]
  - Asthenia [Unknown]
  - Heart rate decreased [Recovered/Resolved]
  - Alopecia [Recovered/Resolved]
  - Urinary tract infection [Unknown]
  - Presyncope [Recovering/Resolving]
  - Blood pressure decreased [Recovered/Resolved]
  - Arthralgia [Recovering/Resolving]
  - Procedural nausea [Recovering/Resolving]
  - Fatigue [Unknown]
  - Frequent bowel movements [Unknown]
  - Headache [Unknown]
  - Hip arthroplasty [Recovered/Resolved]
  - Bladder prolapse [Not Recovered/Not Resolved]
  - Sleep apnoea syndrome [Not Recovered/Not Resolved]
  - Malaise [Recovering/Resolving]

NARRATIVE: CASE EVENT DATE: 2019
